FAERS Safety Report 21778234 (Version 1)
Quarter: 2022Q4

REPORT INFORMATION
  Report Type: Spontaneous
  Country: US (occurrence: US)
  Receive Date: 20221226
  Receipt Date: 20221226
  Transmission Date: 20230112
  Serious: Yes (Other)
  Sender: FDA-Public Use
  Company Number: US-drreddys-LIT/USA/22/0158663

PATIENT
  Age: 63 Year
  Sex: Male

DRUGS (4)
  1. PYRIDOXINE HYDROCHLORIDE [Suspect]
     Active Substance: PYRIDOXINE HYDROCHLORIDE
     Indication: Toxicity to various agents
  2. THIAMINE HYDROCHLORIDE [Suspect]
     Active Substance: THIAMINE HYDROCHLORIDE
     Indication: Toxicity to various agents
  3. FOMEPIZOLE [Suspect]
     Active Substance: FOMEPIZOLE
     Indication: Toxicity to various agents
  4. FOLIC ACID [Suspect]
     Active Substance: FOLIC ACID
     Indication: Toxicity to various agents

REACTIONS (3)
  - Acute kidney injury [Unknown]
  - Crystal urine present [Unknown]
  - Drug ineffective for unapproved indication [Unknown]
